FAERS Safety Report 10983743 (Version 2)
Quarter: 2015Q2

REPORT INFORMATION
  Report Type: Report from Study
  Country: US (occurrence: US)
  Receive Date: 20150403
  Receipt Date: 20150609
  Transmission Date: 20150821
  Serious: Yes (Hospitalization)
  Sender: FDA-Public Use
  Company Number: US-SANOFI-AVENTIS-2013SA025691

PATIENT
  Age: 43 Year
  Sex: Female

DRUGS (18)
  1. NITROGLYCERIN ^SLOVAKOFARMA^ [Concomitant]
     Dosage: FREQUENCY- AS NEEDED
  2. XANAX [Concomitant]
     Active Substance: ALPRAZOLAM
     Dosage: FREQUENCY- AS NEEDED
  3. GABAPENTIN. [Concomitant]
     Active Substance: GABAPENTIN
  4. TOPROL XL [Concomitant]
     Active Substance: METOPROLOL SUCCINATE
  5. AUBAGIO [Suspect]
     Active Substance: TERIFLUNOMIDE
     Indication: MULTIPLE SCLEROSIS
     Route: 048
     Dates: start: 20130218
  6. SOMA [Concomitant]
     Active Substance: CARISOPRODOL
  7. VITAMIN D3 [Concomitant]
     Active Substance: CHOLECALCIFEROL
  8. EFFEXOR [Concomitant]
     Active Substance: VENLAFAXINE HYDROCHLORIDE
  9. MOTRIN [Concomitant]
     Active Substance: IBUPROFEN
     Dosage: DOSE- 600 , FREQUENCY- AS NEEDED
  10. ASPIRIN. [Concomitant]
     Active Substance: ASPIRIN
  11. IBUPROFEN. [Concomitant]
     Active Substance: IBUPROFEN
  12. PLAVIX [Concomitant]
     Active Substance: CLOPIDOGREL BISULFATE
  13. VITAMIN B12 [Concomitant]
     Active Substance: CYANOCOBALAMIN
  14. PROTONIX [Concomitant]
     Active Substance: PANTOPRAZOLE SODIUM
  15. TRAZODONE [Concomitant]
     Active Substance: TRAZODONE HYDROCHLORIDE
  16. PRAVACHOL [Concomitant]
     Active Substance: PRAVASTATIN SODIUM
  17. FENOFIBRATE. [Concomitant]
     Active Substance: FENOFIBRATE
  18. NORCO [Concomitant]
     Active Substance: ACETAMINOPHEN\HYDROCODONE BITARTRATE
     Dosage: DOSE- 5-325 , FREQUENCY- AS NEEDED

REACTIONS (7)
  - Nerve compression [Unknown]
  - Dizziness [Recovering/Resolving]
  - Nausea [Recovering/Resolving]
  - Decreased appetite [Recovering/Resolving]
  - Fracture [Unknown]
  - Diarrhoea [Recovering/Resolving]
  - Alopecia [Recovering/Resolving]
